FAERS Safety Report 6649015-3 (Version None)
Quarter: 2010Q1

REPORT INFORMATION
  Report Type: 
  Country: None (occurrence: None)
  Receive Date: 20100324
  Receipt Date: 20100319
  Transmission Date: 20100710
  Serious: Yes (Other)
  Sender: FDA-Public Use
  Company Number: US-MERCK-1003USA03070

PATIENT
  Age: 14 Year
  Sex: Female

DRUGS (5)
  1. SINGULAIR AR [Suspect]
     Indication: HYPERSENSITIVITY
     Route: 048
     Dates: start: 20080101, end: 20100219
  2. ADVAIR DISKUS 100/50 [Concomitant]
     Route: 065
  3. ALBUTEROL [Concomitant]
     Route: 065
  4. ALLEGRA [Concomitant]
     Route: 065
  5. PROZAC [Concomitant]
     Route: 065

REACTIONS (3)
  - DEPRESSION [None]
  - SOCIAL AVOIDANT BEHAVIOUR [None]
  - SUICIDAL IDEATION [None]
